FAERS Safety Report 14548251 (Version 4)
Quarter: 2018Q2

REPORT INFORMATION
  Report Type: Report from Study
  Country: US (occurrence: US)
  Receive Date: 20180219
  Receipt Date: 20180411
  Transmission Date: 20180711
  Serious: Yes (Hospitalization, Other)
  Sender: FDA-Public Use
  Company Number: US-BAYER-2018-018603

PATIENT
  Age: 79 Year
  Sex: Male

DRUGS (3)
  1. STIVARGA [Suspect]
     Active Substance: REGORAFENIB
     Indication: HEPATOCELLULAR CARCINOMA
     Dosage: 40 MG, QD X 1 WEEK
     Route: 048
     Dates: start: 20180124, end: 20180131
  2. STIVARGA [Suspect]
     Active Substance: REGORAFENIB
     Indication: HEPATOCELLULAR CARCINOMA
     Dosage: DAILY DOSE 40 MG, 3 WEEKS ON/ONE WEEK OFF
     Route: 048
     Dates: start: 20180309, end: 201803
  3. STIVARGA [Suspect]
     Active Substance: REGORAFENIB
     Indication: HEPATOCELLULAR CARCINOMA
     Dosage: DAILY DOSE 80 MG 21 DAYS ON / 7 DAYS OFF
     Route: 048
     Dates: start: 201803, end: 20180326

REACTIONS (12)
  - Influenza [None]
  - Gastrointestinal tube insertion [None]
  - Sepsis [None]
  - Off label use [None]
  - Dermatitis acneiform [Not Recovered/Not Resolved]
  - Nasopharyngitis [None]
  - Rash papular [None]
  - Abdominal discomfort [None]
  - Dyspepsia [Not Recovered/Not Resolved]
  - Abdominal distension [Not Recovered/Not Resolved]
  - Skin papilloma [None]
  - Dry skin [Not Recovered/Not Resolved]

NARRATIVE: CASE EVENT DATE: 2018
